FAERS Safety Report 7426343-5 (Version None)
Quarter: 2011Q2

REPORT INFORMATION
  Report Type: 
  Country: None (occurrence: None)
  Receive Date: 20110420
  Receipt Date: 20110415
  Transmission Date: 20111010
  Serious: Yes (Hospitalization)
  Sender: FDA-Public Use
  Company Number: B0714054A

PATIENT
  Age: 82 Year
  Sex: Male

DRUGS (15)
  1. MARZULENE [Concomitant]
     Route: 048
  2. LORCAM [Concomitant]
     Route: 048
  3. LOXONIN [Concomitant]
     Route: 062
  4. VOLTAREN [Concomitant]
     Route: 061
  5. SPIRIVA [Concomitant]
     Route: 055
  6. ZANTAC [Concomitant]
     Route: 048
  7. HALCION [Concomitant]
     Route: 048
  8. MUCOSOLVAN [Concomitant]
     Route: 065
  9. THEO-DUR [Concomitant]
     Route: 065
  10. CHINESE MEDICINE [Concomitant]
     Route: 048
  11. YAKUBAN [Concomitant]
     Route: 062
  12. AVOLVE [Suspect]
     Indication: BENIGN PROSTATIC HYPERPLASIA
     Dosage: .5MG PER DAY
     Route: 048
     Dates: start: 20101202
  13. PRORENAL [Concomitant]
     Route: 048
  14. URIEF [Concomitant]
     Route: 048
  15. ADOAIR [Concomitant]
     Route: 055

REACTIONS (3)
  - COUGH [None]
  - DYSPNOEA [None]
  - CHEST PAIN [None]
